FAERS Safety Report 9139419 (Version 1)
Quarter: 2013Q1

REPORT INFORMATION
  Report Type: Spontaneous
  Country: US (occurrence: US)
  Receive Date: 20130305
  Receipt Date: 20130305
  Transmission Date: 20140127
  Serious: Yes (Death)
  Sender: FDA-Public Use
  Company Number: PHEH2013US005226

PATIENT
  Sex: Male

DRUGS (11)
  1. TASIGNA [Suspect]
     Indication: GASTRIC CANCER
     Dosage: 200 MG, Q12H
     Dates: start: 2010, end: 201302
  2. ALTACE [Concomitant]
  3. TEROZOSINA [Concomitant]
  4. ALPRAZOLAM [Concomitant]
  5. LIPITOR [Concomitant]
  6. AMBIEN [Concomitant]
  7. AVANDAMET [Concomitant]
  8. TRICOR [Concomitant]
  9. GLIPIZIDE [Concomitant]
  10. ATENOLOL [Concomitant]
  11. NORVASC [Concomitant]

REACTIONS (1)
  - Pneumonia [Fatal]
